FAERS Safety Report 8073457-5 (Version None)
Quarter: 2012Q1

REPORT INFORMATION
  Report Type: 
  Country: None (occurrence: None)
  Receive Date: 20120126
  Receipt Date: 20120126
  Transmission Date: 20120608
  Serious: Yes (Life-Threatening, Hospitalization)
  Sender: FDA-Public Use
  Company Number: None

PATIENT
  Age: 65 Year
  Sex: Female
  Weight: 47.627 kg

DRUGS (1)
  1. BACLOFEN [Suspect]
     Indication: MUSCLE SPASMS
     Dosage: 90
     Route: 050
     Dates: start: 20111101, end: 20111101

REACTIONS (4)
  - LOSS OF CONSCIOUSNESS [None]
  - FEELING ABNORMAL [None]
  - RENAL FUNCTION TEST ABNORMAL [None]
  - AMNESIA [None]
